FAERS Safety Report 9502870 (Version 3)
Quarter: 2014Q1

REPORT INFORMATION
  Report Type: Report from Study
  Country: GR (occurrence: GR)
  Receive Date: 20130906
  Receipt Date: 20140116
  Transmission Date: 20141002
  Serious: Yes (Hospitalization)
  Sender: FDA-Public Use
  Company Number: GR-AMGEN-GRCCT2013062161

PATIENT
  Age: 76 Year
  Sex: Male
  Weight: 56 kg

DRUGS (5)
  1. PANITUMUMAB [Suspect]
     Indication: GASTRIC CANCER
     Dosage: 6 MG/KG, Q4WK
     Route: 042
     Dates: start: 20130429, end: 20130606
  2. DOCETAXEL [Concomitant]
     Indication: GASTRIC CANCER
     Dosage: 48 MG, Q2WK
     Route: 042
     Dates: start: 20130424
  3. CISPLATIN [Concomitant]
     Indication: GASTRIC CANCER
     Dosage: 48 MG, Q2WK
     Route: 042
     Dates: start: 20130424
  4. 5-FLUOROURACIL [Concomitant]
     Indication: GASTRIC CANCER
     Dosage: UNK UNK, Q2WK
     Route: 042
     Dates: start: 20130424
  5. LEUCOVORIN [Concomitant]
     Indication: GASTRIC CANCER
     Dosage: 480 MG, Q2WK
     Route: 042
     Dates: start: 20130424

REACTIONS (1)
  - Stomatitis [Recovered/Resolved]
